FAERS Safety Report 9680607 (Version 2)
Quarter: 2013Q4

REPORT INFORMATION
  Report Type: Spontaneous
  Country: US (occurrence: US)
  Receive Date: 20131111
  Receipt Date: 20131202
  Transmission Date: 20140711
  Serious: Yes (Other)
  Sender: FDA-Public Use
  Company Number: US-PFIZER INC-2013317428

PATIENT
  Age: 63 Year
  Sex: Female
  Weight: 52.6 kg

DRUGS (6)
  1. XALKORI [Suspect]
     Indication: LUNG NEOPLASM MALIGNANT
     Dosage: 250 MG, 2X/DAY
     Dates: start: 201308, end: 201310
  2. FOLIC ACID [Concomitant]
     Dosage: UNK
  3. LEXAPRO [Concomitant]
     Indication: DEPRESSION
     Dosage: 5 MG, 1X/DAY
  4. LEXAPRO [Concomitant]
     Indication: ANXIETY
  5. LEXAPRO [Concomitant]
     Indication: LUNG NEOPLASM MALIGNANT
  6. TEMAZEPAM [Concomitant]
     Indication: SLEEP DISORDER
     Dosage: 30 MG, 1X/DAY

REACTIONS (3)
  - Peripheral nerve injury [Unknown]
  - Neuralgia [Unknown]
  - Oedema peripheral [Recovering/Resolving]
